FAERS Safety Report 8746122 (Version 5)
Quarter: 2014Q1

REPORT INFORMATION
  Report Type: Report from Study
  Country: US (occurrence: US)
  Receive Date: 20120827
  Receipt Date: 20140106
  Transmission Date: 20141002
  Serious: Yes (Other)
  Sender: FDA-Public Use
  Company Number: PHEH2012US016478

PATIENT
  Age: 57 Year
  Sex: Male

DRUGS (29)
  1. EXELON PATCH [Suspect]
     Indication: DEMENTIA ALZHEIMER^S TYPE
     Dosage: 4.6 MG, UNK
     Route: 062
  2. EXELON PATCH [Suspect]
     Dosage: 2 DF (4.6MG), UNK
     Route: 062
  3. EXELON PATCH [Suspect]
     Dosage: 9.5 MG, ONCE A DAY
     Route: 062
  4. EXELON PATCH [Suspect]
     Dosage: 13.3 MG, DAILY
     Route: 062
     Dates: start: 20120301
  5. DEXTROAMPHETAMINE [Concomitant]
     Dosage: UNK UKN, UNK
  6. NOVOLOG [Concomitant]
     Dosage: UNK UKN, UNK
  7. LISINOPRIL [Concomitant]
     Dosage: 2.5 MG, UNK
  8. GLIMEPIRID [Concomitant]
     Dosage: UNK UKN, UNK
  9. ATENOLOL [Concomitant]
     Dosage: 50 MG, UNK
  10. LIPITOR [Concomitant]
     Dosage: 20 MG, UNK
  11. LEVEMIR [Concomitant]
     Dosage: 35 U, UNK
  12. METFORMIN [Concomitant]
     Dosage: 1000 UKN, UNK
  13. ROPINIROLE [Concomitant]
     Dosage: 2 MG, UNK
  14. POTASSIUM [Concomitant]
     Dosage: UNK UKN, UNK
  15. PRILOSEC [Concomitant]
     Dosage: UNK UKN, UNK
  16. TRICOR [Concomitant]
     Dosage: 45 MG, UNK
  17. DILTIAZEM [Concomitant]
     Dosage: 180 MG, UNK
  18. ASPIRIN [Concomitant]
     Dosage: 325 MG, UNK
  19. VITAMIN B12 [Concomitant]
     Dosage: UNK UKN, UNK (EVERY 3 OR 4 WEEKS)
  20. FOLIC ACID [Concomitant]
     Dosage: 1 MG, UNK
  21. THIAMINE [Concomitant]
     Dosage: 100 MG, UNK
  22. CLENIL [Concomitant]
     Dosage: UNK UKN, UNK
  23. AP CALCIUM+VIT D [Concomitant]
     Dosage: UNK UKN, UNK
  24. LASIX [Concomitant]
     Dosage: 40 MG, UNK
  25. VITAMIN D [Concomitant]
     Dosage: 3500 MG, UNK
  26. OXYCONTIN [Concomitant]
     Dosage: UNK UKN, UNK
  27. INFLUENZA [Concomitant]
     Dosage: UNK UKN, UNK
  28. CEFEPIME [Concomitant]
     Dosage: UNK UKN, UNK
  29. VITAMIIN C [Concomitant]
     Dosage: 1000 MG, UNK

REACTIONS (8)
  - Staphylococcal infection [Unknown]
  - Osteomyelitis [Unknown]
  - Blood glucose abnormal [Unknown]
  - Pain [Unknown]
  - Wound [Unknown]
  - Skin ulcer [Recovering/Resolving]
  - Decreased appetite [Recovering/Resolving]
  - Drug administration error [Unknown]
